FAERS Safety Report 10855023 (Version 1)
Quarter: 2015Q1

REPORT INFORMATION
  Report Type: Spontaneous
  Country: US (occurrence: None)
  Receive Date: 20150218
  Receipt Date: 20150218
  Transmission Date: 20150721
  Serious: No
  Sender: FDA-Public Use
  Company Number: None

PATIENT
  Age: 65 Year
  Sex: Female
  Weight: 72.58 kg

DRUGS (1)
  1. RESTASIS [Suspect]
     Active Substance: CYCLOSPORINE
     Indication: DRY EYE
     Dosage: 1 DROP, TWICE DAILY, INTO THE EYE?
     Dates: start: 20141128, end: 20141208

REACTIONS (7)
  - Ocular hyperaemia [None]
  - Sinusitis [None]
  - Eye irritation [None]
  - Vision blurred [None]
  - Foreign body sensation in eyes [None]
  - Dry eye [None]
  - Urticaria [None]
